FAERS Safety Report 8910403 (Version 3)
Quarter: 2012Q4

REPORT INFORMATION
  Report Type: 
  Country: US (occurrence: US)
  Receive Date: 20121115
  Receipt Date: 20121124
  Transmission Date: 20130627
  Serious: No
  Sender: FDA-Public Use
  Company Number: US-009507513-1211USA002401

PATIENT
  Age: 53 None
  Sex: Female

DRUGS (2)
  1. PEGINTRON [Suspect]
     Indication: HEPATITIS C
     Dosage: UNK
     Dates: start: 20121101
  2. REBETOL [Suspect]
     Indication: HEPATITIS C
     Dosage: UNK
     Route: 048
     Dates: start: 20111101

REACTIONS (12)
  - Irritability [Unknown]
  - Insomnia [Unknown]
  - Dehydration [Unknown]
  - Somnolence [Unknown]
  - Irritability [Unknown]
  - Anxiety [Unknown]
  - Pain [Unknown]
  - Influenza [Unknown]
  - Chills [Unknown]
  - Anxiety [Unknown]
  - Irritability [Unknown]
  - Insomnia [Unknown]
